FAERS Safety Report 6421204-2 (Version None)
Quarter: 2009Q4

REPORT INFORMATION
  Report Type: 
  Country: None (occurrence: None)
  Receive Date: 20091029
  Receipt Date: 20091029
  Transmission Date: 20100525
  Serious: No
  Sender: FDA-Public Use
  Company Number: None

PATIENT
  Age: 59 Year
  Sex: Female
  Weight: 72.5755 kg

DRUGS (3)
  1. ALLERGY INJ. UNKNOWN [Suspect]
     Indication: HOUSE DUST ALLERGY
     Dates: start: 20091020, end: 20091020
  2. ALLERGY INJ. UNKNOWN [Suspect]
     Indication: MULTIPLE ALLERGIES
     Dates: start: 20091020, end: 20091020
  3. ALLERGY INJ. UNKNOWN [Suspect]
     Indication: SEASONAL ALLERGY
     Dates: start: 20091020, end: 20091020

REACTIONS (3)
  - DYSPNOEA [None]
  - IMMEDIATE POST-INJECTION REACTION [None]
  - WHEEZING [None]
